FAERS Safety Report 15729343 (Version 1)
Quarter: 2018Q4

REPORT INFORMATION
  Report Type: Report from Study
  Country: US (occurrence: US)
  Receive Date: 20181217
  Receipt Date: 20181217
  Transmission Date: 20190205
  Serious: Yes (Other)
  Sender: FDA-Public Use
  Company Number: US-JNJFOC-20180937024

PATIENT
  Age: 66 Year
  Sex: Male

DRUGS (13)
  1. MVI [Concomitant]
     Active Substance: VITAMINS
     Route: 065
  2. IMBRUVICA [Suspect]
     Active Substance: IBRUTINIB
     Indication: CHRONIC LYMPHOCYTIC LEUKAEMIA
     Route: 048
  3. ALBUTEROL. [Concomitant]
     Active Substance: ALBUTEROL
  4. CAMELLIA SINENSIS [Concomitant]
     Active Substance: GREEN TEA LEAF
  5. LEVOTHYROXINE. [Concomitant]
     Active Substance: LEVOTHYROXINE
     Route: 065
  6. VITAMIN D3 [Concomitant]
     Active Substance: CHOLECALCIFEROL
  7. GLUCOSAMINE [Concomitant]
     Active Substance: GLUCOSAMINE
  8. TADALAFIL. [Concomitant]
     Active Substance: TADALAFIL
     Route: 065
  9. LIPITOR [Concomitant]
     Active Substance: ATORVASTATIN CALCIUM
  10. LAMICTAL [Concomitant]
     Active Substance: LAMOTRIGINE
  11. COENZYME Q10 [Concomitant]
     Active Substance: UBIDECARENONE
  12. SINGULAIR [Concomitant]
     Active Substance: MONTELUKAST SODIUM
     Route: 065
  13. TRAMADOL. [Concomitant]
     Active Substance: TRAMADOL
     Route: 065

REACTIONS (1)
  - Pericarditis [Recovered/Resolved]

NARRATIVE: CASE EVENT DATE: 20180919
